FAERS Safety Report 9261926 (Version 1)
Quarter: 2013Q2

REPORT INFORMATION
  Report Type: Spontaneous
  Country: BR (occurrence: BR)
  Receive Date: 20130429
  Receipt Date: 20130429
  Transmission Date: 20140414
  Serious: Yes (Hospitalization)
  Sender: FDA-Public Use
  Company Number: BR-009507513-1304BRA016864

PATIENT
  Sex: Female

DRUGS (2)
  1. MERCILON CONTI [Suspect]
     Dosage: UNK
     Route: 048
     Dates: start: 2008, end: 20130411
  2. MERCILON CONTI [Suspect]
     Dosage: UNK, QD
     Route: 048
     Dates: start: 20130413

REACTIONS (7)
  - Hepatomegaly [Unknown]
  - Pain [Not Recovered/Not Resolved]
  - Hepatic steatosis [Not Recovered/Not Resolved]
  - White blood cell count increased [Recovered/Resolved]
  - Urinary tract infection [Recovered/Resolved]
  - Menstrual disorder [Recovered/Resolved]
  - Drug administration error [Unknown]
